FAERS Safety Report 8848582 (Version 1)
Quarter: 2012Q4

REPORT INFORMATION
  Report Type: 
  Country: US (occurrence: US)
  Receive Date: 20121018
  Receipt Date: 20121018
  Transmission Date: 20130627
  Serious: Yes (Other)
  Sender: FDA-Public Use
  Company Number: US-ROCHE-1141717

PATIENT
  Sex: Male
  Weight: 25.9 kg

DRUGS (1)
  1. NUTROPIN AQ [Suspect]
     Indication: FAILURE TO THRIVE
     Route: 065

REACTIONS (7)
  - Growth retardation [Unknown]
  - Drug dose omission [Unknown]
  - Influenza [Unknown]
  - Eye infection [Unknown]
  - Decreased appetite [Unknown]
  - Kyphosis [Unknown]
  - Malaise [Unknown]
